FAERS Safety Report 20219226 (Version 1)
Quarter: 2021Q4

REPORT INFORMATION
  Report Type: Report from Study
  Country: GB (occurrence: GB)
  Receive Date: 20211222
  Receipt Date: 20211222
  Transmission Date: 20220303
  Serious: Yes (Hospitalization)
  Sender: FDA-Public Use
  Company Number: GB-BIOMARINAP-GB-2012-100075

PATIENT
  Age: 65 Year
  Sex: Male
  Weight: 106.9 kg

DRUGS (4)
  1. TALAZOPARIB [Suspect]
     Active Substance: TALAZOPARIB
     Indication: Haematological malignancy
     Dosage: 2000 UG, 1X/DAY
     Route: 048
     Dates: start: 20121212, end: 20130108
  2. TALAZOPARIB [Suspect]
     Active Substance: TALAZOPARIB
     Dosage: UNK
     Dates: start: 20130213
  3. PREDNISOLONE [Suspect]
     Active Substance: PREDNISOLONE
     Dosage: 10 MG, UNK
     Dates: start: 20121210, end: 20121220
  4. THYROXINE [Concomitant]
     Active Substance: LEVOTHYROXINE
     Dosage: UNK

REACTIONS (1)
  - Febrile neutropenia [Recovered/Resolved]

NARRATIVE: CASE EVENT DATE: 20121229
